FAERS Safety Report 25631777 (Version 1)
Quarter: 2025Q3

REPORT INFORMATION
  Report Type: Spontaneous
  Country: US (occurrence: US)
  Receive Date: 20250801
  Receipt Date: 20250801
  Transmission Date: 20251021
  Serious: No
  Sender: ROCHE
  Company Number: US-ROCHE-10000349233

PATIENT
  Sex: Female

DRUGS (2)
  1. XOLAIR [Suspect]
     Active Substance: OMALIZUMAB
     Indication: Asthma
     Dosage: STRENGTH:300MG/2ML
     Route: 058
     Dates: start: 202406
  2. XOLAIR [Suspect]
     Active Substance: OMALIZUMAB
     Indication: Rheumatoid arthritis
     Dosage: 2 SYRINGES EVERY 2 WEEKS
     Route: 058

REACTIONS (2)
  - Inappropriate schedule of product administration [Unknown]
  - No adverse event [Unknown]
